FAERS Safety Report 8310303-6 (Version None)
Quarter: 2012Q2

REPORT INFORMATION
  Report Type: 
  Country: None (occurrence: None)
  Receive Date: 20120425
  Receipt Date: 20120417
  Transmission Date: 20120825
  Serious: Yes (Other)
  Sender: FDA-Public Use
  Company Number: PHHY2012MX025152

PATIENT
  Sex: Female

DRUGS (3)
  1. EXFORGE [Suspect]
     Indication: HYPERTENSION
     Dosage: 1 DF, PER DAY (160 MG VALS AND 5 MG AMLO)
     Dates: start: 20120307
  2. METFORMIN HCL [Concomitant]
     Indication: DIABETES MELLITUS
     Dosage: 1 DF, PER DAY
     Dates: start: 20120307
  3. GALVUS [Concomitant]
     Indication: DIABETES MELLITUS
     Dosage: 1 DF, PER DAY
     Dates: start: 20120320

REACTIONS (9)
  - URINARY TRACT INFECTION [None]
  - BLOOD GLUCOSE INCREASED [None]
  - HUNGER [None]
  - OVERWEIGHT [None]
  - ABDOMINAL DISCOMFORT [None]
  - BLOOD TRIGLYCERIDES INCREASED [None]
  - FATIGUE [None]
  - BLOOD CHOLESTEROL INCREASED [None]
  - BLOOD DISORDER [None]
